FAERS Safety Report 7540716-1 (Version None)
Quarter: 2011Q2

REPORT INFORMATION
  Report Type: 
  Country: None (occurrence: None)
  Receive Date: 20110603
  Receipt Date: 20110525
  Transmission Date: 20111010
  Serious: Yes (Other)
  Sender: FDA-Public Use
  Company Number: 2011SP024628

PATIENT
  Age: 60 Year
  Sex: Male

DRUGS (4)
  1. SINGULAIR [Concomitant]
  2. CRESTOR [Suspect]
     Indication: DYSLIPIDAEMIA
     Dosage: 5 MG; QD; PO
     Route: 048
     Dates: start: 20110517, end: 20110524
  3. THEO-DUR [Concomitant]
  4. CLARITIN [Suspect]
     Indication: ASTHMA
     Dosage: 10 MG; QD; PO
     Route: 048
     Dates: start: 20030101

REACTIONS (3)
  - URTICARIA [None]
  - PRURITUS [None]
  - GENERALISED ERYTHEMA [None]
